FAERS Safety Report 7231756-0 (Version None)
Quarter: 2011Q1

REPORT INFORMATION
  Report Type: 
  Country: None (occurrence: None)
  Receive Date: 20110118
  Receipt Date: 20110110
  Transmission Date: 20110831
  Serious: Yes (Hospitalization)
  Sender: FDA-Public Use
  Company Number: US-ASTRAZENECA-2011SE01595

PATIENT
  Age: 52 Year
  Sex: Female
  Weight: 72.6 kg

DRUGS (5)
  1. IBUPROFEN [Concomitant]
  2. HYDROXYZINE [Concomitant]
  3. FEXOFENADINE HCL [Concomitant]
  4. SEROQUEL [Suspect]
     Indication: BIPOLAR DISORDER
     Route: 048
     Dates: start: 20070101
  5. ATENOLOL [Concomitant]

REACTIONS (3)
  - ANKLE FRACTURE [None]
  - LOWER LIMB FRACTURE [None]
  - FALL [None]
